FAERS Safety Report 9566574 (Version 2)
Quarter: 2014Q1

REPORT INFORMATION
  Report Type: Spontaneous
  Country: GB (occurrence: GB)
  Receive Date: 20130930
  Receipt Date: 20140130
  Transmission Date: 20141002
  Serious: Yes (Other)
  Sender: FDA-Public Use
  Company Number: GB-PFIZER INC-2013273596

PATIENT
  Age: 27 Year
  Sex: Female
  Weight: 72.1 kg

DRUGS (11)
  1. ONDANSETRON HCL [Suspect]
     Indication: PROPHYLAXIS OF NAUSEA AND VOMITING
     Dosage: 4MG,AS NEEDED
     Route: 048
     Dates: start: 20130907, end: 20130911
  2. TRAMADOL HCL [Suspect]
     Indication: PAIN
     Dosage: AS REQUIRED
     Route: 048
     Dates: start: 20130907
  3. TRAMADOL HCL [Suspect]
     Dosage: 100 MG, UNK
     Route: 048
  4. CYCLIZINE [Suspect]
     Indication: PROPHYLAXIS OF NAUSEA AND VOMITING
     Dosage: 50MG, AS NEEDED
     Route: 048
     Dates: start: 20130907, end: 20130911
  5. ENOXAPARIN [Concomitant]
     Dosage: 40MG, 1X/DAY
     Route: 058
  6. PARACETAMOL [Concomitant]
     Dosage: 1G,  4 TIMES A DAY
     Route: 065
  7. SALBUTAMOL [Concomitant]
     Indication: ASTHMA
     Dosage: 1-2 PUFFS WHEN REQUIRED (TAKING ON ADMISSION).
     Route: 055
  8. IBUPROFEN [Concomitant]
     Dosage: 400 MG, AS NEEDED
     Route: 065
  9. CO-CODAMOL [Concomitant]
     Dosage: 2 DF, AS NEEDED
     Route: 048
  10. ORAMORPH [Concomitant]
     Dosage: 2-10 MG AS NEEDED
     Route: 065
  11. METOCLOPRAMIDE [Concomitant]
     Dosage: 10MG, AS NEEDED
     Route: 065
     Dates: start: 20130911

REACTIONS (6)
  - Convulsion [Recovered/Resolved]
  - Loss of consciousness [Recovered/Resolved]
  - Tremor [Recovered/Resolved]
  - Chest discomfort [Recovered/Resolved]
  - Feeling abnormal [Recovered/Resolved]
  - Pallor [Recovered/Resolved]
